FAERS Safety Report 9311672 (Version 2)
Quarter: 2013Q2

REPORT INFORMATION
  Report Type: Spontaneous
  Country: GB (occurrence: GB)
  Receive Date: 20130528
  Receipt Date: 20130628
  Transmission Date: 20140414
  Serious: Yes (Other)
  Sender: FDA-Public Use
  Company Number: GB-JNJFOC-20130407012

PATIENT
  Age: 46 Year
  Sex: Female

DRUGS (3)
  1. PALEXIA SR [Suspect]
     Indication: BACK PAIN
     Route: 048
     Dates: start: 20130226, end: 2013
  2. PALEXIA SR [Suspect]
     Indication: BACK PAIN
     Route: 048
     Dates: start: 2013, end: 20130324
  3. PAROXETINE [Concomitant]
     Indication: DEPRESSION
     Route: 048

REACTIONS (5)
  - Suicidal ideation [Recovered/Resolved]
  - Depression [Recovered/Resolved]
  - Mood swings [Recovered/Resolved]
  - Anxiety [Recovered/Resolved]
  - Palpitations [Recovered/Resolved]
